FAERS Safety Report 6323431-1 (Version None)
Quarter: 2009Q3

REPORT INFORMATION
  Report Type: 
  Country: None (occurrence: None)
  Receive Date: 20090824
  Receipt Date: 20090401
  Transmission Date: 20100115
  Serious: No
  Sender: FDA-Public Use
  Company Number: US-ABBOTT-09P-163-0566178-00

PATIENT
  Sex: Female
  Weight: 63.56 kg

DRUGS (6)
  1. NIASPAN [Suspect]
     Indication: BLOOD CHOLESTEROL INCREASED
     Route: 048
     Dates: start: 20090319, end: 20090322
  2. SYNTHROID [Concomitant]
     Indication: HYPOTHYROIDISM
  3. FOSAMAX [Concomitant]
     Indication: OSTEOPOROSIS
  4. CENTRUM VITAMINS [Concomitant]
     Indication: ROUTINE HEALTH MAINTENANCE
  5. VITAMIN D [Concomitant]
     Indication: ROUTINE HEALTH MAINTENANCE
  6. MULTIVITAMIN [Concomitant]
     Indication: ROUTINE HEALTH MAINTENANCE

REACTIONS (5)
  - BLISTER [None]
  - FLUSHING [None]
  - PRURITUS [None]
  - RASH ERYTHEMATOUS [None]
  - SENSORY DISTURBANCE [None]
